FAERS Safety Report 6609884-X (Version None)
Quarter: 2010Q1

REPORT INFORMATION
  Report Type: 
  Country: None (occurrence: None)
  Receive Date: 20100302
  Receipt Date: 20100224
  Transmission Date: 20100710
  Serious: Yes (Other)
  Sender: FDA-Public Use
  Company Number: PHHY2009BR44598

PATIENT
  Sex: Male
  Weight: 64 kg

DRUGS (11)
  1. EXELON [Suspect]
     Indication: DEMENTIA ALZHEIMER'S TYPE
     Dosage: 1.5 MG, QD
     Route: 048
     Dates: start: 20060501
  2. EXELON [Suspect]
     Dosage: 3 MG, BID
     Route: 048
  3. ATENOLOL [Concomitant]
     Indication: BLOOD PRESSURE MANAGEMENT
     Dosage: 1 DF, QD
     Route: 048
  4. ATACAND [Concomitant]
     Indication: BLOOD PRESSURE MANAGEMENT
     Dosage: 1 DF, QD
     Route: 048
  5. CLOPIDOGREL BISULFATE [Concomitant]
     Indication: CARDIAC DISORDER
     Dosage: 1 DF, QD
     Route: 048
  6. ISOSORBIDE MONOHYDRATE [Concomitant]
     Indication: CARDIAC DISORDER
     Dosage: 1 DF, QD
     Route: 048
  7. SOMALGIN CARDIO [Concomitant]
     Indication: ANTICOAGULANT THERAPY
     Dosage: 1 DF, QD
     Route: 048
  8. LASIX [Concomitant]
     Indication: DIURETIC THERAPY
     Dosage: 0.5 DF, QD
     Route: 048
  9. LASIX [Concomitant]
     Indication: BLOOD PRESSURE MANAGEMENT
  10. ZANIDIP [Concomitant]
     Indication: HYPERTENSION
     Dosage: 1 DF, QD
     Route: 048
  11. LEXAPRO [Concomitant]
     Indication: HYPERTENSION
     Dosage: 1 DF, QD
     Route: 048

REACTIONS (7)
  - ANGIOPLASTY [None]
  - CONCOMITANT DISEASE AGGRAVATED [None]
  - DEMENTIA ALZHEIMER'S TYPE [None]
  - FLATULENCE [None]
  - HEADACHE [None]
  - HYPERTENSION [None]
  - INSOMNIA [None]
